FAERS Safety Report 8149071-X (Version None)
Quarter: 2012Q1

REPORT INFORMATION
  Report Type: 
  Country: None (occurrence: None)
  Receive Date: 20120218
  Receipt Date: 20110830
  Transmission Date: 20120608
  Serious: No
  Sender: FDA-Public Use
  Company Number: US-ALLERGAN-1111575US

PATIENT
  Age: 44 Year
  Sex: Female

DRUGS (2)
  1. BOTOX COSMETIC [Suspect]
     Indication: SKIN WRINKLING
     Dosage: 15 UNITS, SINGLE
     Route: 030
     Dates: start: 20110825, end: 20110825
  2. ORACEA [Suspect]
     Indication: ACNE
     Dosage: 40 MG, QD
     Route: 048
     Dates: end: 20110828

REACTIONS (3)
  - NAUSEA [None]
  - DIZZINESS [None]
  - FACIAL PAIN [None]
